FAERS Safety Report 5368232-6 (Version None)
Quarter: 2007Q2

REPORT INFORMATION
  Report Type: 
  Country: None (occurrence: None)
  Receive Date: 20070625
  Receipt Date: 20070614
  Transmission Date: 20071010
  Serious: Yes (Other)
  Sender: FDA-Public Use
  Company Number: CA-JNJFOC-20070603645

PATIENT
  Sex: Female
  Weight: 100.9 kg

DRUGS (2)
  1. REMICADE [Suspect]
     Route: 042
     Dates: start: 20070529, end: 20070612
  2. REMICADE [Suspect]
     Indication: ANKYLOSING SPONDYLITIS
     Route: 042
     Dates: start: 20070529, end: 20070612

REACTIONS (6)
  - ABDOMINAL PAIN UPPER [None]
  - AMNESIA [None]
  - DIARRHOEA [None]
  - FATIGUE [None]
  - MALAISE [None]
  - VOMITING [None]
